FAERS Safety Report 5195522-2 (Version None)
Quarter: 2006Q4

REPORT INFORMATION
  Report Type: 
  Country: None (occurrence: None)
  Receive Date: 20061226
  Receipt Date: 20061226
  Transmission Date: 20070319
  Serious: Yes (Life-Threatening, Other)
  Sender: FDA-Public Use
  Company Number: None

PATIENT
  Age: 54 Year
  Sex: Female
  Weight: 90.7194 kg

DRUGS (1)
  1. ZICAM COLD REMEDY CHEWABLES STAW NA ZICAM 3221630003 [Suspect]
     Indication: NASOPHARYNGITIS
     Dosage: 1 CHEWABLE SQUARE   EVERY 3 HOURS   PO
     Route: 048
     Dates: start: 20061221, end: 20061222

REACTIONS (2)
  - BLOOD GLUCOSE INCREASED [None]
  - PHARMACEUTICAL PRODUCT COMPLAINT [None]
